FAERS Safety Report 18500682 (Version 1)
Quarter: 2020Q4

REPORT INFORMATION
  Report Type: Spontaneous
  Country: AF (occurrence: AF)
  Receive Date: 20201112
  Receipt Date: 20201112
  Transmission Date: 20210114
  Serious: No
  Sender: FDA-Public Use
  Company Number: None

PATIENT
  Age: 53 Year
  Sex: Male
  Weight: 105.3 kg

DRUGS (1)
  1. DARZALEX [Suspect]
     Active Substance: DARATUMUMAB
     Indication: PLASMA CELL MYELOMA
     Dosage: ?          OTHER FREQUENCY:WEEKLY;?
     Route: 041
     Dates: start: 20201001

REACTIONS (6)
  - Sneezing [None]
  - Lacrimation increased [None]
  - Dyspnoea [None]
  - Rash [None]
  - Chest discomfort [None]
  - Pruritus [None]

NARRATIVE: CASE EVENT DATE: 20201001
